FAERS Safety Report 7374563-0 (Version None)
Quarter: 2011Q1

REPORT INFORMATION
  Report Type: 
  Country: None (occurrence: None)
  Receive Date: 20110325
  Receipt Date: 20100316
  Transmission Date: 20110831
  Serious: No
  Sender: FDA-Public Use
  Company Number: US-MYLANLABS-2010S1004646

PATIENT
  Sex: Female

DRUGS (2)
  1. FENTANYL-100 [Suspect]
     Indication: BACK PAIN
     Dosage: Q 72 HOUR
     Route: 062
     Dates: start: 20090101
  2. FENTANYL-100 [Suspect]
     Indication: NECK PAIN
     Dosage: Q 72 HOUR
     Route: 062
     Dates: start: 20090101

REACTIONS (5)
  - FEELING COLD [None]
  - HYPERHIDROSIS [None]
  - DRUG INEFFECTIVE [None]
  - DIARRHOEA [None]
  - BACK PAIN [None]
